FAERS Safety Report 7957074-0 (Version None)
Quarter: 2011Q4

REPORT INFORMATION
  Report Type: 
  Country: None (occurrence: None)
  Receive Date: 20111205
  Receipt Date: 20111125
  Transmission Date: 20120403
  Serious: Yes (Hospitalization)
  Sender: FDA-Public Use
  Company Number: GB-ROCHE-1016469

PATIENT
  Age: 60 Year
  Sex: Male

DRUGS (10)
  1. NAPROXEN [Suspect]
     Indication: BACK PAIN
     Route: 048
     Dates: start: 20111109, end: 20111120
  2. TRAMADOL HCL [Concomitant]
  3. AMITRIPTYLINE HCL [Concomitant]
  4. ATENOLOL [Concomitant]
  5. GLYCERYL TRINITRATE [Concomitant]
  6. ASPIRIN [Concomitant]
  7. LERCANIDIPINE [Concomitant]
  8. MOVIPREP [Concomitant]
  9. ACETAMINOPHEN [Concomitant]
  10. SIMVASTATIN [Concomitant]

REACTIONS (7)
  - FAECES DISCOLOURED [None]
  - DIZZINESS [None]
  - HAEMOGLOBIN DECREASED [None]
  - TACHYCARDIA [None]
  - ABDOMINAL PAIN [None]
  - GASTROINTESTINAL HAEMORRHAGE [None]
  - PALLOR [None]
